FAERS Safety Report 18707046 (Version 1)
Quarter: 2021Q1

REPORT INFORMATION
  Report Type: Spontaneous
  Country: US (occurrence: US)
  Receive Date: 20210106
  Receipt Date: 20210106
  Transmission Date: 20210419
  Serious: Yes (Death)
  Sender: FDA-Public Use
  Company Number: None

PATIENT
  Age: 80 Year
  Sex: Female

DRUGS (10)
  1. VITAMIN D [Concomitant]
     Active Substance: VITAMIN D NOS
  2. RECLAST [Concomitant]
     Active Substance: ZOLEDRONIC ACID
  3. ORENCIA [Suspect]
     Active Substance: ABATACEPT
     Indication: RHEUMATOID ARTHRITIS
     Dosage: ?          OTHER FREQUENCY:EVERY 4 WEEKS;?
     Route: 042
     Dates: start: 20150915
  4. CIMZIA PREFL KIT [Concomitant]
  5. FOLIC ACID. [Concomitant]
     Active Substance: FOLIC ACID
  6. METHOTRAXATE [Concomitant]
     Active Substance: METHOTREXATE SODIUM
  7. CALCIUM CARB [Concomitant]
     Active Substance: CALCIUM CARBONATE
  8. CHLORDIAZEP [Concomitant]
  9. CELEBREX [Concomitant]
     Active Substance: CELECOXIB
  10. LIBRIUM [Concomitant]
     Active Substance: CHLORDIAZEPOXIDE HYDROCHLORIDE

REACTIONS (1)
  - Death [None]

NARRATIVE: CASE EVENT DATE: 20201220
